FAERS Safety Report 4782691-9 (Version None)
Quarter: 2005Q3

REPORT INFORMATION
  Report Type: 
  Country: None (occurrence: None)
  Receive Date: 20050929
  Receipt Date: 20050725
  Transmission Date: 20060218
  Serious: No
  Sender: FDA-Public Use
  Company Number: 412014

PATIENT
  Age: 19 Year
  Sex: Male

DRUGS (10)
  1. COREG [Suspect]
     Dosage: 15.625MG TWICE PER DAY
     Route: 048
  2. ENALAPRIL [Concomitant]
  3. COLACE [Concomitant]
  4. POTASSIUM [Concomitant]
  5. JUVEN [Concomitant]
  6. COQ10 [Concomitant]
  7. VIT B12 [Concomitant]
  8. PULMOZYME [Concomitant]
  9. FUROSEMIDE [Concomitant]
  10. CLOBETASOL [Concomitant]

REACTIONS (1)
  - MEDICATION ERROR [None]
